FAERS Safety Report 9707894 (Version 1)
Quarter: 2013Q4

REPORT INFORMATION
  Report Type: Spontaneous
  Country: FR (occurrence: FR)
  Receive Date: 20131125
  Receipt Date: 20131125
  Transmission Date: 20140711
  Serious: Yes (Disabling)
  Sender: FDA-Public Use
  Company Number: FR-ASTRAZENECA-2013SE85343

PATIENT
  Age: 573 Month
  Sex: Male

DRUGS (6)
  1. INEXIUM [Suspect]
     Route: 048
  2. ARAVA [Suspect]
     Route: 048
     Dates: start: 200908, end: 201310
  3. RAMIPRIL [Concomitant]
  4. PERMIXON [Concomitant]
  5. OMEXEL [Concomitant]
  6. KERLONE [Concomitant]

REACTIONS (1)
  - Peripheral sensory neuropathy [Not Recovered/Not Resolved]
